FAERS Safety Report 22124136 (Version 1)
Quarter: 2023Q1

REPORT INFORMATION
  Report Type: Spontaneous
  Country: US (occurrence: US)
  Receive Date: 20230322
  Receipt Date: 20230322
  Transmission Date: 20230417
  Serious: Yes (Hospitalization)
  Sender: FDA-Public Use
  Company Number: US-BIOVITRUM-2023-US-007218

PATIENT
  Age: 0 Year
  Sex: Female

DRUGS (1)
  1. SYNAGIS [Suspect]
     Active Substance: PALIVIZUMAB
     Indication: Premature baby
     Dosage: 50MG/0.5ML, 15 MG/KG MONTHLY
     Route: 030
     Dates: start: 202210

REACTIONS (3)
  - Breast milk substitute intolerance [Unknown]
  - Flatulence [Unknown]
  - Weight increased [Unknown]

NARRATIVE: CASE EVENT DATE: 20230313
